FAERS Safety Report 6535831-5 (Version None)
Quarter: 2010Q1

REPORT INFORMATION
  Report Type: 
  Country: None (occurrence: None)
  Receive Date: 20100113
  Receipt Date: 20100108
  Transmission Date: 20100710
  Serious: Yes (Other)
  Sender: FDA-Public Use
  Company Number: US-PFIZER INC-2010003653

PATIENT
  Sex: Male
  Weight: 81.633 kg

DRUGS (1)
  1. XALATAN [Suspect]
     Indication: GLAUCOMA
     Dosage: 1 GTT IN THE LEFT EYE
     Route: 047
     Dates: start: 20091101, end: 20091201

REACTIONS (2)
  - CORNEAL INFECTION [None]
  - VISION BLURRED [None]
